FAERS Safety Report 8370964-2 (Version None)
Quarter: 2012Q2

REPORT INFORMATION
  Report Type: 
  Country: None (occurrence: None)
  Receive Date: 20120518
  Receipt Date: 20120419
  Transmission Date: 20120825
  Serious: No
  Sender: FDA-Public Use
  Company Number: US-ASTRAZENECA-2012SE25764

PATIENT
  Age: 47 Year
  Sex: Male
  Weight: 79.4 kg

DRUGS (3)
  1. SEROQUEL [Suspect]
     Indication: SLEEP DISORDER
     Route: 048
  2. SEROQUEL [Suspect]
     Route: 048
  3. OXAPROZIN [Concomitant]
     Indication: PAIN

REACTIONS (2)
  - OFF LABEL USE [None]
  - PANIC ATTACK [None]
